FAERS Safety Report 14362094 (Version 1)
Quarter: 2018Q1

REPORT INFORMATION
  Report Type: Report from Study
  Country: None (occurrence: FR)
  Receive Date: 20180108
  Receipt Date: 20180108
  Transmission Date: 20180509
  Serious: Yes (Other)
  Sender: FDA-Public Use
  Company Number: FR-ABBVIE-18K-056-2210449-00

PATIENT
  Age: 43 Year
  Sex: Male
  Weight: 75 kg

DRUGS (8)
  1. HUMIRA [Suspect]
     Active Substance: ADALIMUMAB
     Indication: PSORIASIS
     Route: 058
     Dates: start: 20160314, end: 20160314
  2. TACROLIMUS. [Concomitant]
     Active Substance: TACROLIMUS
     Indication: PRODUCT USED FOR UNKNOWN INDICATION
     Dates: start: 20160314
  3. TOLEXINE [Concomitant]
     Active Substance: DOXYCYCLINE
     Indication: PRODUCT USED FOR UNKNOWN INDICATION
     Dates: start: 20170306, end: 20170406
  4. TALTZ [Suspect]
     Active Substance: IXEKIZUMAB
     Route: 058
     Dates: start: 20170320, end: 201709
  5. SOOLANTRA [Concomitant]
     Active Substance: IVERMECTIN
     Indication: PRODUCT USED FOR UNKNOWN INDICATION
     Dates: start: 20170306
  6. HUMIRA [Suspect]
     Active Substance: ADALIMUMAB
     Route: 058
     Dates: start: 20160321, end: 20170306
  7. TALTZ [Suspect]
     Active Substance: IXEKIZUMAB
     Indication: PRODUCT USED FOR UNKNOWN INDICATION
     Route: 058
     Dates: start: 20170306, end: 20170320
  8. PROTOPIC [Concomitant]
     Active Substance: TACROLIMUS
     Indication: PRODUCT USED FOR UNKNOWN INDICATION
     Dates: start: 20160314

REACTIONS (3)
  - Haemorrhoids [Not Recovered/Not Resolved]
  - Crohn^s disease [Not Recovered/Not Resolved]
  - Rectal haemorrhage [Not Recovered/Not Resolved]

NARRATIVE: CASE EVENT DATE: 201709
